FAERS Safety Report 8827861 (Version 1)
Quarter: 2012Q4

REPORT INFORMATION
  Report Type: 
  Country: US (occurrence: US)
  Receive Date: 20121008
  Receipt Date: 20121008
  Transmission Date: 20130627
  Serious: No
  Sender: FDA-Public Use
  Company Number: US-PFIZER INC-2012247852

PATIENT
  Age: 32 Year
  Sex: Male
  Weight: 92.97 kg

DRUGS (1)
  1. XANAX [Suspect]
     Indication: ANXIETY
     Dosage: UNK, as needed
     Route: 048
     Dates: start: 2012

REACTIONS (1)
  - Drug intolerance [Unknown]
